FAERS Safety Report 8318782-5 (Version None)
Quarter: 2012Q2

REPORT INFORMATION
  Report Type: 
  Country: None (occurrence: None)
  Receive Date: 20120427
  Receipt Date: 20120419
  Transmission Date: 20120825
  Serious: Yes (Other)
  Sender: FDA-Public Use
  Company Number: US-ABBOTT-12P-163-0927802-00

PATIENT
  Sex: Female
  Weight: 77.18 kg

DRUGS (6)
  1. HUMIRA [Suspect]
     Indication: CROHN'S DISEASE
     Route: 058
     Dates: start: 20080101
  2. ELAVIL [Concomitant]
     Indication: MIGRAINE
  3. LIALDA [Concomitant]
     Indication: CROHN'S DISEASE
  4. PREMARIN [Concomitant]
     Indication: HORMONE REPLACEMENT THERAPY
  5. LOTREL [Concomitant]
     Indication: HYPERTENSION
  6. WELLBUTRIN [Concomitant]
     Indication: DIARRHOEA

REACTIONS (1)
  - INTESTINAL OBSTRUCTION [None]
